FAERS Safety Report 10948761 (Version 1)
Quarter: 2015Q1

REPORT INFORMATION
  Report Type: Spontaneous
  Country: US (occurrence: None)
  Receive Date: 20150323
  Receipt Date: 20150323
  Transmission Date: 20150721
  Serious: No
  Sender: FDA-Public Use
  Company Number: None

PATIENT
  Age: 52 Year
  Sex: Male
  Weight: 92.99 kg

DRUGS (8)
  1. BYDUREON [Suspect]
     Active Substance: EXENATIDE
     Indication: TYPE 2 DIABETES MELLITUS
     Dosage: 2MG SUB ONCE WEEKLY
     Route: 058
     Dates: start: 20150226, end: 20150312
  2. METFORMIN [Concomitant]
     Active Substance: METFORMIN HYDROCHLORIDE
  3. ATORVASTATIN [Concomitant]
     Active Substance: ATORVASTATIN
  4. LISINOPRIL. [Concomitant]
     Active Substance: LISINOPRIL
  5. HERBAL TREATMENTS (NOS) [Concomitant]
     Active Substance: HERBALS
  6. ASPIRIN. [Concomitant]
     Active Substance: ASPIRIN
  7. GLIMEPIRIDE. [Concomitant]
     Active Substance: GLIMEPIRIDE
  8. METOPROLOL TARTRATE. [Concomitant]
     Active Substance: METOPROLOL TARTRATE

REACTIONS (6)
  - Dermatitis contact [None]
  - Lip swelling [None]
  - Rash pruritic [None]
  - Eye swelling [None]
  - Swelling face [None]
  - Rash erythematous [None]

NARRATIVE: CASE EVENT DATE: 20150318
